FAERS Safety Report 7405757-3 (Version None)
Quarter: 2011Q2

REPORT INFORMATION
  Report Type: 
  Country: None (occurrence: None)
  Receive Date: 20110406
  Receipt Date: 20110406
  Transmission Date: 20111010
  Serious: Yes (Other)
  Sender: FDA-Public Use
  Company Number: None

PATIENT
  Sex: Female
  Weight: 117.9352 kg

DRUGS (2)
  1. COSOPT [Suspect]
     Indication: GLAUCOMA
     Dosage: 1 EYE DROP TWICE A DAY EYE
     Route: 047
     Dates: start: 20100409, end: 20110308
  2. SAPHRIS [Concomitant]

REACTIONS (8)
  - PSORIASIS [None]
  - TACHYCARDIA [None]
  - DYSPNOEA [None]
  - ROSACEA [None]
  - OEDEMA PERIPHERAL [None]
  - BACK PAIN [None]
  - ALOPECIA [None]
  - URINARY TRACT DISORDER [None]
